FAERS Safety Report 22370905 (Version 3)
Quarter: 2024Q2

REPORT INFORMATION
  Report Type: Report from Study
  Country: CN (occurrence: CN)
  Receive Date: 20230526
  Receipt Date: 20240415
  Transmission Date: 20240716
  Serious: Yes (Hospitalization, Other)
  Sender: FDA-Public Use
  Company Number: CN-TAKEDA-2023TUS051760

PATIENT
  Age: 31 Year
  Sex: Male
  Weight: 49 kg

DRUGS (6)
  1. VEDOLIZUMAB [Suspect]
     Active Substance: VEDOLIZUMAB
     Indication: Colitis ulcerative
     Dosage: 300 MILLIGRAM
     Route: 042
     Dates: start: 20220824
  2. MESALAMINE [Concomitant]
     Active Substance: MESALAMINE
     Indication: Inflammatory bowel disease
     Dosage: 1 GRAM, TID
     Route: 048
     Dates: start: 20220808
  3. MESALAMINE [Concomitant]
     Active Substance: MESALAMINE
     Indication: Inflammatory bowel disease
     Dosage: UNK
     Dates: start: 202001
  4. MESALAMINE [Concomitant]
     Active Substance: MESALAMINE
     Indication: Inflammatory bowel disease
     Dosage: 1 GRAM, TID
     Route: 048
     Dates: start: 20220808
  5. MESALAMINE [Concomitant]
     Active Substance: MESALAMINE
     Dosage: 1 GRAM, QID
     Route: 048
     Dates: start: 20231127
  6. METRONIDAZOLE [Concomitant]
     Active Substance: METRONIDAZOLE
     Indication: Inflammatory bowel disease
     Dosage: 0.4 GRAM, TID
     Route: 048
     Dates: start: 20231127

REACTIONS (2)
  - Gastrointestinal infection [Recovered/Resolved]
  - Pneumonia [Recovered/Resolved]

NARRATIVE: CASE EVENT DATE: 20230517
